FAERS Safety Report 9493446 (Version 3)
Quarter: 2013Q4

REPORT INFORMATION
  Report Type: Spontaneous
  Country: CH (occurrence: CH)
  Receive Date: 20130902
  Receipt Date: 20131202
  Transmission Date: 20140711
  Serious: Yes (Other)
  Sender: FDA-Public Use
  Company Number: CH-PFIZER INC-2013250069

PATIENT
  Age: 55 Year
  Sex: Female

DRUGS (7)
  1. LYRICA [Suspect]
     Indication: DIABETIC NEUROPATHY
     Dosage: 200 MG, 2X/DAY
     Route: 048
     Dates: start: 200910
  2. LYRICA [Suspect]
     Indication: POLYNEUROPATHY
     Dosage: 100 MG, 2X/DAY
     Route: 048
  3. LYRICA [Suspect]
     Dosage: 50 AND 100 MG PER DAY
     Route: 048
  4. PLAVIX [Concomitant]
     Dosage: 75 MG, 1X/DAY
     Route: 048
  5. LIPANTHYL [Concomitant]
     Dosage: 2.67 NG, 1X/DAY
     Route: 048
  6. INSULIN [Concomitant]
     Dosage: UNK
     Route: 058
  7. HYDROCORTISONE [Concomitant]
     Dosage: 30 NG, 2X/DAY
     Route: 048

REACTIONS (2)
  - Lipodystrophy acquired [Not Recovered/Not Resolved]
  - Weight increased [Not Recovered/Not Resolved]
